FAERS Safety Report 13076247 (Version 1)
Quarter: 2016Q4

REPORT INFORMATION
  Report Type: Spontaneous
  Country: PE (occurrence: PE)
  Receive Date: 20161230
  Receipt Date: 20161230
  Transmission Date: 20170207
  Serious: Yes (Hospitalization)
  Sender: FDA-Public Use
  Company Number: PE-SA-2016SA229151

PATIENT
  Sex: Female

DRUGS (8)
  1. TOUJEO [Suspect]
     Active Substance: INSULIN GLARGINE
     Route: 065
  2. SOLOSTAR [Concomitant]
     Active Substance: DEVICE
  3. TOUJEO [Suspect]
     Active Substance: INSULIN GLARGINE
     Route: 065
  4. TOUJEO [Suspect]
     Active Substance: INSULIN GLARGINE
     Route: 065
  5. TOUJEO [Suspect]
     Active Substance: INSULIN GLARGINE
     Route: 065
  6. LANTUS [Suspect]
     Active Substance: INSULIN GLARGINE
     Indication: DIABETES MELLITUS
     Dosage: 10-20 IU PER DAY
     Route: 058
     Dates: start: 201603, end: 201611
  7. TOUJEO [Suspect]
     Active Substance: INSULIN GLARGINE
     Route: 065
  8. SOLOSTAR [Concomitant]
     Active Substance: DEVICE

REACTIONS (4)
  - Eye disorder [Recovered/Resolved]
  - Blood glucose increased [Recovering/Resolving]
  - Nephropathy [Unknown]
  - Drug ineffective [Unknown]
